FAERS Safety Report 4935518-6 (Version None)
Quarter: 2006Q1

REPORT INFORMATION
  Report Type: 
  Country: None (occurrence: None)
  Receive Date: 20060307
  Receipt Date: 20050823
  Transmission Date: 20060701
  Serious: No
  Sender: FDA-Public Use
  Company Number: US015734

PATIENT
  Age: 55 Year
  Sex: Female
  Weight: 125.5 kg

DRUGS (2)
  1. REQUIP [Suspect]
     Indication: DRUG USE FOR UNKNOWN INDICATION
     Route: 048
     Dates: start: 20040512
  2. MIRAPEX [Suspect]
     Indication: DRUG USE FOR UNKNOWN INDICATION
     Route: 065
     Dates: start: 20021211

REACTIONS (1)
  - WEIGHT INCREASED [None]
